FAERS Safety Report 25928927 (Version 1)
Quarter: 2025Q4

REPORT INFORMATION
  Report Type: Report from Study
  Country: EU (occurrence: EU)
  Receive Date: 20251016
  Receipt Date: 20251016
  Transmission Date: 20260118
  Serious: Yes (Other)
  Sender: JOHNSON AND JOHNSON
  Company Number: EU-JNJFOC-20251006693

PATIENT

DRUGS (1)
  1. RYBREVANT [Suspect]
     Active Substance: AMIVANTAMAB-VMJW
     Indication: Non-small cell lung cancer
     Route: 065

REACTIONS (8)
  - Skin toxicity [Unknown]
  - Infusion related reaction [Unknown]
  - Gastrointestinal disorder [Unknown]
  - Interstitial lung disease [Unknown]
  - Nervous system disorder [Unknown]
  - Pyrexia [Unknown]
  - Asthenia [Unknown]
  - Eye disorder [Unknown]
